FAERS Safety Report 6160270-9 (Version None)
Quarter: 2009Q2

REPORT INFORMATION
  Report Type: 
  Country: None (occurrence: None)
  Receive Date: 20090420
  Receipt Date: 20090410
  Transmission Date: 20091009
  Serious: Yes (Other)
  Sender: FDA-Public Use
  Company Number: FR-ABBOTT-09P-056-0568176-00

PATIENT
  Sex: Male

DRUGS (2)
  1. DEPAKENE [Suspect]
     Indication: MYOCLONIC EPILEPSY
     Route: 048
     Dates: start: 20090101, end: 20090101
  2. DEPAKENE [Suspect]
     Route: 048
     Dates: start: 20090101

REACTIONS (2)
  - DRUG LEVEL BELOW THERAPEUTIC [None]
  - EPILEPSY [None]
